FAERS Safety Report 8438665-X (Version None)
Quarter: 2012Q2

REPORT INFORMATION
  Report Type: 
  Country: None (occurrence: None)
  Receive Date: 20120615
  Receipt Date: 20120612
  Transmission Date: 20120825
  Serious: No
  Sender: FDA-Public Use
  Company Number: US-PFIZER INC-2012034478

PATIENT
  Sex: Female
  Weight: 77.098 kg

DRUGS (3)
  1. ELAVIL [Concomitant]
     Indication: RESTLESSNESS
     Dosage: UNK
  2. LORCET-HD [Concomitant]
     Indication: BACK PAIN
     Dosage: 10/650 MG, AS NEEDED
  3. LYRICA [Suspect]
     Indication: NERVE COMPRESSION
     Dosage: 150 MG, 2X/DAY
     Route: 048
     Dates: start: 20110101, end: 20110101

REACTIONS (5)
  - IRRITABILITY [None]
  - PAIN [None]
  - DRUG WITHDRAWAL SYNDROME [None]
  - CRYING [None]
  - FEELING ABNORMAL [None]
